FAERS Safety Report 18327922 (Version 1)
Quarter: 2020Q3

REPORT INFORMATION
  Report Type: Spontaneous
  Country: RU (occurrence: RU)
  Receive Date: 20200930
  Receipt Date: 20200930
  Transmission Date: 20201103
  Serious: Yes (Other)
  Sender: FDA-Public Use
  Company Number: RU-009507513-2009RUS010157

PATIENT
  Age: 8 Year
  Sex: Male
  Weight: 23 kg

DRUGS (2)
  1. FLUCONAZOLE. [Concomitant]
     Active Substance: FLUCONAZOLE
     Dosage: 200 MILLIGRAM
     Route: 042
     Dates: start: 20200305, end: 20200310
  2. INVANZ [Suspect]
     Active Substance: ERTAPENEM SODIUM
     Indication: CHRONIC KIDNEY DISEASE
     Dosage: 350MG TWICE DAILY
     Route: 030
     Dates: start: 20200303, end: 20200310

REACTIONS (3)
  - Alanine aminotransferase increased [Recovered/Resolved]
  - Aspartate aminotransferase increased [Unknown]
  - Hepatic enzyme increased [Recovered/Resolved]
